FAERS Safety Report 8509238-5 (Version None)
Quarter: 2012Q3

REPORT INFORMATION
  Report Type: 
  Country: None (occurrence: None)
  Receive Date: 20120713
  Receipt Date: 20120705
  Transmission Date: 20120928
  Serious: Yes (Other)
  Sender: FDA-Public Use
  Company Number: US-PFIZER INC-2011151677

PATIENT
  Sex: Female
  Weight: 61.224 kg

DRUGS (11)
  1. NEURONTIN [Suspect]
     Dosage: UNK, 3X/DAY
     Route: 048
     Dates: start: 20030101
  2. NEURONTIN [Suspect]
     Indication: MIGRAINE
  3. ESTRADIOL [Concomitant]
     Dosage: UNK
  4. NEURONTIN [Suspect]
     Indication: NERVE INJURY
     Dosage: 100 MG, 3X/DAY
     Route: 048
     Dates: start: 20070101
  5. DILANTIN [Suspect]
     Indication: EPILEPSY
     Dosage: 200MG IN MORNING AND 300MG AT NIGHT
     Route: 048
     Dates: start: 20110115
  6. TOPAMAX [Concomitant]
     Indication: MIGRAINE
     Dosage: UNK
  7. AMITRIPTYLINE [Concomitant]
     Indication: MIGRAINE
     Dosage: UNK
  8. ESTRADIOL [Concomitant]
     Indication: OVARIAN CYST
     Dosage: UNK
  9. AMITRIPTYLINE [Concomitant]
     Indication: SLEEP DISORDER
     Dosage: UNK
  10. DEPAKOTE [Suspect]
     Indication: EPILEPSY
     Dosage: 500 MG, 2X/DAY
     Route: 048
     Dates: start: 20090101
  11. PERCOCET [Concomitant]
     Indication: PAIN
     Dosage: UNK

REACTIONS (4)
  - NERVOUS SYSTEM DISORDER [None]
  - EPILEPSY [None]
  - MEMORY IMPAIRMENT [None]
  - SPEECH DISORDER [None]
